FAERS Safety Report 25827404 (Version 2)
Quarter: 2025Q4

REPORT INFORMATION
  Report Type: Spontaneous
  Country: US (occurrence: US)
  Receive Date: 20250920
  Receipt Date: 20251006
  Transmission Date: 20260117
  Serious: No
  Sender: BIOGEN
  Company Number: US-BIOGEN-2021BI00976140

PATIENT
  Age: 32 Year
  Sex: Male

DRUGS (3)
  1. TYSABRI [Suspect]
     Active Substance: NATALIZUMAB
     Indication: Multiple sclerosis
     Dosage: INFUSED OVER 1 HOUR
     Route: 050
     Dates: start: 20170405
  2. TYSABRI [Suspect]
     Active Substance: NATALIZUMAB
     Route: 050
     Dates: start: 202008
  3. TYSABRI [Suspect]
     Active Substance: NATALIZUMAB
     Route: 050
     Dates: start: 20150316, end: 20160831

REACTIONS (4)
  - Prescribed underdose [Not Recovered/Not Resolved]
  - Gastrointestinal infection [Unknown]
  - Multiple sclerosis relapse [Unknown]
  - Illness [Unknown]

NARRATIVE: CASE EVENT DATE: 20200801
